FAERS Safety Report 7340105-9 (Version None)
Quarter: 2011Q1

REPORT INFORMATION
  Report Type: 
  Country: None (occurrence: None)
  Receive Date: 20110309
  Receipt Date: 20110224
  Transmission Date: 20110831
  Serious: Yes (Hospitalization, Other)
  Sender: FDA-Public Use
  Company Number: PHFR2011GB01065

PATIENT
  Sex: Male

DRUGS (2)
  1. CLOZARIL [Suspect]
     Dosage: 650 MG, UNK
     Route: 048
     Dates: start: 20101020
  2. CLOZARIL [Suspect]
     Indication: SCHIZOPHRENIA
     Dosage: UNK MG, UNK
     Route: 048
     Dates: start: 20010701

REACTIONS (3)
  - WHITE BLOOD CELL COUNT DECREASED [None]
  - BLOOD TEST ABNORMAL [None]
  - NEUTROPHIL COUNT DECREASED [None]
